FAERS Safety Report 6428789-0 (Version None)
Quarter: 2009Q4

REPORT INFORMATION
  Report Type: 
  Country: None (occurrence: None)
  Receive Date: 20091103
  Receipt Date: 20091019
  Transmission Date: 20100525
  Serious: Yes (Hospitalization)
  Sender: FDA-Public Use
  Company Number: M0900712

PATIENT
  Age: 68 Year
  Sex: Female

DRUGS (7)
  1. KLOR-CON [Suspect]
     Indication: MINERAL SUPPLEMENTATION
     Dosage: 1 IN 1 D, ORAL, ALTERNATING 10 MEQ AND 20 MEQ, QD, ORAL
     Route: 048
     Dates: end: 20070101
  2. KLOR-CON [Suspect]
     Indication: MINERAL SUPPLEMENTATION
     Dosage: 1 IN 1 D, ORAL, ALTERNATING 10 MEQ AND 20 MEQ, QD, ORAL
     Route: 048
     Dates: start: 20070101
  3. DIOVAN HCT [Concomitant]
  4. CELEBREX [Concomitant]
  5. TRAZODONE HCL [Concomitant]
  6. PREMPRO [Concomitant]
  7. QUESTRAN [Concomitant]

REACTIONS (7)
  - BLOOD MAGNESIUM DECREASED [None]
  - BLOOD POTASSIUM DECREASED [None]
  - MALAISE [None]
  - MEDICATION RESIDUE [None]
  - PALPITATIONS [None]
  - PARAESTHESIA [None]
  - PRODUCT SOLUBILITY ABNORMAL [None]
